FAERS Safety Report 9200710 (Version 1)
Quarter: 2013Q2

REPORT INFORMATION
  Report Type: Spontaneous
  Country: IT (occurrence: IT)
  Receive Date: 20130401
  Receipt Date: 20130401
  Transmission Date: 20140414
  Serious: Yes (Hospitalization)
  Sender: FDA-Public Use
  Company Number: IT-PFIZER INC-2013073401

PATIENT
  Age: 58 Year
  Sex: Female

DRUGS (3)
  1. ALPRAZOLAM [Suspect]
     Indication: DEPRESSION
     Dosage: 0.5 MG, 2X/DAY
  2. ALPRAZOLAM [Suspect]
     Dosage: 1.5 MG, 1X/DAY
  3. PREGABALIN [Suspect]
     Indication: DEPRESSION
     Dosage: 225 MG, 1X/DAY

REACTIONS (5)
  - Somatisation disorder [Unknown]
  - Tremor [Unknown]
  - Depression [Unknown]
  - Anxiety [Unknown]
  - Sleep disorder [Unknown]
